FAERS Safety Report 5564249-7 (Version None)
Quarter: 2007Q4

REPORT INFORMATION
  Report Type: 
  Country: None (occurrence: None)
  Receive Date: 20071217
  Receipt Date: 20071214
  Transmission Date: 20080405
  Serious: Yes (Hospitalization)
  Sender: FDA-Public Use
  Company Number: US-GILEAD-2007-0014642

PATIENT
  Sex: Female

DRUGS (3)
  1. LETAIRIS [Suspect]
     Indication: PULMONARY HYPERTENSION
     Route: 048
  2. REVATIO [Concomitant]
     Indication: PULMONARY HYPERTENSION
  3. FLOLAN [Concomitant]
     Indication: PULMONARY HYPERTENSION

REACTIONS (1)
  - FLUID OVERLOAD [None]
